FAERS Safety Report 25268655 (Version 1)
Quarter: 2025Q2

REPORT INFORMATION
  Report Type: Report from Study
  Country: US (occurrence: US)
  Receive Date: 20250505
  Receipt Date: 20250505
  Transmission Date: 20250716
  Serious: Yes (Other)
  Sender: ABBVIE
  Company Number: US-ABBVIE-6263349

PATIENT
  Age: 71 Year
  Sex: Female

DRUGS (3)
  1. RINVOQ [Suspect]
     Active Substance: UPADACITINIB
     Indication: Rheumatoid arthritis
     Dosage: STRENGTH: 15 MG
     Route: 048
     Dates: end: 202309
  2. RINVOQ [Suspect]
     Active Substance: UPADACITINIB
     Indication: Rheumatoid arthritis
     Dosage: STRENGTH: 15 MG
     Route: 048
     Dates: start: 202504
  3. ORENCIA [Concomitant]
     Active Substance: ABATACEPT
     Indication: Product used for unknown indication

REACTIONS (13)
  - Blindness unilateral [Unknown]
  - COVID-19 [Recovered/Resolved]
  - Weight decreased [Unknown]
  - Alopecia [Recovering/Resolving]
  - Abdominal distension [Unknown]
  - Hepatic cirrhosis [Unknown]
  - Night sweats [Recovered/Resolved]
  - Therapeutic product effect decreased [Unknown]
  - Pain [Unknown]
  - Limb mass [Unknown]
  - Neuropathy peripheral [Unknown]
  - Neuralgia [Unknown]
  - Myelosuppression [Recovered/Resolved]

NARRATIVE: CASE EVENT DATE: 20230101
